FAERS Safety Report 22043132 (Version 1)
Quarter: 2023Q1

REPORT INFORMATION
  Report Type: Spontaneous
  Country: HU (occurrence: HU)
  Receive Date: 20230228
  Receipt Date: 20230228
  Transmission Date: 20230418
  Serious: Yes (Hospitalization)
  Sender: FDA-Public Use
  Company Number: None

PATIENT
  Age: 40 Year
  Sex: Female

DRUGS (2)
  1. MABTHERA [Suspect]
     Active Substance: RITUXIMAB
     Indication: Neuromyelitis optica spectrum disorder
     Route: 041
     Dates: start: 202005, end: 202005
  2. MEDROL [Concomitant]
     Active Substance: METHYLPREDNISOLONE
     Indication: Neuromyelitis optica spectrum disorder
     Dates: start: 20221122, end: 20221201

REACTIONS (2)
  - Immunosuppression [Recovered/Resolved with Sequelae]
  - Pyoderma [Recovered/Resolved with Sequelae]

NARRATIVE: CASE EVENT DATE: 20221208
